FAERS Safety Report 20542954 (Version 1)
Quarter: 2022Q1

REPORT INFORMATION
  Report Type: Spontaneous
  Country: RU (occurrence: RU)
  Receive Date: 20220302
  Receipt Date: 20220302
  Transmission Date: 20220423
  Serious: Yes (Other)
  Sender: FDA-Public Use
  Company Number: RU-NOVARTISPH-NVSC2022RU048733

PATIENT
  Age: 58 Year
  Sex: Female

DRUGS (5)
  1. ETOPOSIDE [Suspect]
     Active Substance: ETOPOSIDE
     Indication: Ovarian germ cell choriocarcinoma
     Dosage: UNK, UNKNOWN
     Route: 042
  2. METHOTREXATE [Suspect]
     Active Substance: METHOTREXATE
     Indication: Ovarian germ cell choriocarcinoma
     Dosage: 5 CYCLES OF INTRAVENOUS EMA-CO
     Route: 042
  3. ACTINOMYCIN D [Suspect]
     Active Substance: DACTINOMYCIN
     Indication: Ovarian germ cell choriocarcinoma
     Dosage: 5 CYCLES OF INTRAVENOUS EMA-CO
     Route: 042
  4. CYCLOPHOSPHAMIDE [Suspect]
     Active Substance: CYCLOPHOSPHAMIDE
     Indication: Ovarian germ cell choriocarcinoma
     Dosage: 5 CYCLES OF INTRAVENOUS EMA-CO
     Route: 042
  5. VINCRISTINE [Suspect]
     Active Substance: VINCRISTINE
     Indication: Ovarian germ cell choriocarcinoma
     Dosage: 5 CYCLES OF INTRAVENOUS EMA-CO
     Route: 042

REACTIONS (4)
  - Neutropenia [Unknown]
  - Anaemia [Unknown]
  - Peripheral sensory neuropathy [Unknown]
  - Product use in unapproved indication [Unknown]
